FAERS Safety Report 6636880-9 (Version None)
Quarter: 2010Q1

REPORT INFORMATION
  Report Type: 
  Country: None (occurrence: None)
  Receive Date: 20100316
  Receipt Date: 20100305
  Transmission Date: 20100710
  Serious: Yes (Hospitalization, Other)
  Sender: FDA-Public Use
  Company Number: PHHY2010JP13765

PATIENT
  Sex: Female
  Weight: 47 kg

DRUGS (6)
  1. DIOVAN [Suspect]
     Dosage: 40 MG, QD
     Route: 048
     Dates: start: 20080214, end: 20090709
  2. AMLODIPINE [Concomitant]
     Indication: HYPERTENSION
     Dosage: 2.5 MG, UNK
     Route: 048
     Dates: start: 20080214
  3. ARICEPT [Concomitant]
     Dosage: 5 MG, UNK
     Route: 048
     Dates: start: 20090219, end: 20090709
  4. LUPRAC [Concomitant]
     Dosage: 4 MG, UNK
     Route: 048
     Dates: start: 20090219, end: 20090709
  5. AMAZOLON [Concomitant]
     Dosage: 100 MG, UNK
     Route: 048
     Dates: start: 20090219, end: 20090709
  6. OPALMON [Concomitant]
     Dosage: 15 UG, UNK
     Route: 048
     Dates: start: 20090514, end: 20090709

REACTIONS (4)
  - ARTERIOSCLEROSIS OBLITERANS [None]
  - CARDIAC FAILURE [None]
  - DECREASED APPETITE [None]
  - DEHYDRATION [None]
